FAERS Safety Report 5072582-0 (Version None)
Quarter: 2006Q3

REPORT INFORMATION
  Report Type: 
  Country: None (occurrence: None)
  Receive Date: 20060807
  Receipt Date: 20060724
  Transmission Date: 20061208
  Serious: Yes (Life-Threatening, Hospitalization)
  Sender: FDA-Public Use
  Company Number: DE-JNJFOC-20060701705

PATIENT
  Sex: Female

DRUGS (1)
  1. RISPERDAL CONSTA [Suspect]
     Indication: SCHIZOPHRENIA
     Route: 030

REACTIONS (5)
  - DELUSION [None]
  - HYPERVOLAEMIA [None]
  - HYPONATRAEMIA [None]
  - METABOLIC ENCEPHALOPATHY [None]
  - POLYDIPSIA PSYCHOGENIC [None]
